FAERS Safety Report 7879935-3 (Version None)
Quarter: 2011Q4

REPORT INFORMATION
  Report Type: 
  Country: None (occurrence: None)
  Receive Date: 20111101
  Receipt Date: 20111020
  Transmission Date: 20120403
  Serious: Yes (Other)
  Sender: FDA-Public Use
  Company Number: US-PFIZER INC-2011256787

PATIENT
  Age: 75 Year
  Sex: Female

DRUGS (3)
  1. GENTAMICIN SULFATE [Suspect]
     Indication: ENDOPHTHALMITIS
  2. VANCOMYCIN HCL [Suspect]
  3. CEFTAZIDIME [Suspect]
     Indication: ENDOPHTHALMITIS

REACTIONS (1)
  - MACULAR DEGENERATION [None]
